FAERS Safety Report 10479333 (Version 3)
Quarter: 2014Q4

REPORT INFORMATION
  Report Type: Spontaneous
  Country: CA (occurrence: CA)
  Receive Date: 20140926
  Receipt Date: 20141105
  Transmission Date: 20150528
  Serious: Yes (Life-Threatening)
  Sender: FDA-Public Use
  Company Number: CA-GE HEALTHCARE MEDICAL DIAGNOSTICS-OMPQ-PR-1409S-1172

PATIENT
  Sex: Female

DRUGS (2)
  1. OMNIPAQUE [Suspect]
     Active Substance: IOHEXOL
     Indication: DIAGNOSTIC PROCEDURE
  2. OMNIPAQUE [Suspect]
     Active Substance: IOHEXOL
     Indication: PRODUCT USED FOR UNKNOWN INDICATION
     Route: 042
     Dates: start: 20140915, end: 20140915

REACTIONS (4)
  - Dyspnoea [Recovered/Resolved]
  - Chest discomfort [Unknown]
  - Resuscitation [None]
  - Erythema [Unknown]

NARRATIVE: CASE EVENT DATE: 20140915
